FAERS Safety Report 7611138-X (Version None)
Quarter: 2011Q3

REPORT INFORMATION
  Report Type: 
  Country: None (occurrence: None)
  Receive Date: 20110707
  Receipt Date: 20110629
  Transmission Date: 20111222
  Serious: Yes (Death)
  Sender: FDA-Public Use
  Company Number: 2010SP010212

PATIENT
  Age: 54 Year
  Sex: Male
  Weight: 64 kg

DRUGS (11)
  1. FAMOTIDINE [Concomitant]
  2. ALEVIATIN [Concomitant]
  3. RAMELTEON [Concomitant]
  4. PREDNISOLONE [Concomitant]
  5. PHENOBARBITAL TAB [Concomitant]
  6. TEMODAL [Suspect]
     Indication: GLIOBLASTOMA MULTIFORME
     Dosage: 150 MG/M2;QD;PO
     Route: 048
     Dates: start: 20061219, end: 20061223
  7. TEMODAL [Suspect]
     Indication: GLIOBLASTOMA MULTIFORME
     Dosage: 150 MG/M2;QD;PO
     Route: 048
     Dates: start: 20070703, end: 20070707
  8. TEMODAL [Suspect]
     Indication: GLIOBLASTOMA MULTIFORME
     Dosage: 150 MG/M2;QD;PO
     Route: 048
     Dates: start: 20070130, end: 20070203
  9. TEMODAL [Suspect]
     Indication: GLIOBLASTOMA MULTIFORME
     Dosage: 150 MG/M2;QD;PO
     Route: 048
     Dates: start: 20070428, end: 20070502
  10. TEMODAL [Suspect]
     Indication: GLIOBLASTOMA MULTIFORME
     Dosage: 150 MG/M2;QD;PO
     Route: 048
     Dates: start: 20070526, end: 20070530
  11. TEMODAL [Suspect]
     Indication: GLIOBLASTOMA MULTIFORME
     Dosage: 150 MG/M2;QD;PO
     Route: 048
     Dates: start: 20070324, end: 20070328

REACTIONS (2)
  - CARDIO-RESPIRATORY ARREST [None]
  - NASOPHARYNGITIS [None]
